FAERS Safety Report 9155414 (Version 2)
Quarter: 2013Q2

REPORT INFORMATION
  Report Type: Spontaneous
  Country: AU (occurrence: AU)
  Receive Date: 20130311
  Receipt Date: 20130417
  Transmission Date: 20140414
  Serious: Yes (Hospitalization, Other)
  Sender: FDA-Public Use
  Company Number: AU-ROCHE-1195920

PATIENT
  Age: 62 Year
  Sex: Male
  Weight: 129 kg

DRUGS (2)
  1. ZELBORAF [Suspect]
     Indication: PRODUCT USED FOR UNKNOWN INDICATION
     Route: 048
     Dates: start: 20120920, end: 20121126
  2. ZELBORAF [Suspect]
     Route: 065
     Dates: start: 20121212

REACTIONS (8)
  - Pancreatitis [Recovered/Resolved]
  - Gastroenteritis rotavirus [Recovered/Resolved]
  - VIIth nerve paralysis [Recovered/Resolved]
  - Polyneuropathy chronic [Unknown]
  - Paraneoplastic syndrome [Unknown]
  - Guillain-Barre syndrome [Recovered/Resolved]
  - Liver function test abnormal [Unknown]
  - Hepatitis [Recovered/Resolved]
